FAERS Safety Report 7303758-7 (Version None)
Quarter: 2011Q1

REPORT INFORMATION
  Report Type: 
  Country: None (occurrence: None)
  Receive Date: 20110221
  Receipt Date: 20110216
  Transmission Date: 20110831
  Serious: Yes (Other)
  Sender: FDA-Public Use
  Company Number: BE-ROCHE-747074

PATIENT
  Sex: Male
  Weight: 60 kg

DRUGS (5)
  1. FLUOROURACIL [Concomitant]
     Indication: COLON CANCER
     Dosage: FORM: BOLUS
     Route: 042
     Dates: start: 20090713, end: 20100329
  2. FLUOROURACIL [Concomitant]
     Dosage: FORM: INFUSION
     Route: 042
     Dates: start: 20090713, end: 20100329
  3. AVASTIN [Suspect]
     Route: 042
     Dates: start: 20090810, end: 20091228
  4. CAMPTOSAR [Concomitant]
     Indication: COLON CANCER
     Route: 042
     Dates: start: 20090810, end: 20101228
  5. LEUCOVORIN CALCIUM [Concomitant]
     Indication: COLON CANCER
     Route: 042
     Dates: start: 20090713, end: 20100329

REACTIONS (2)
  - MYALGIA [None]
  - NEOPLASM MALIGNANT [None]
